FAERS Safety Report 8608467-X (Version None)
Quarter: 2012Q3

REPORT INFORMATION
  Report Type: 
  Country: None (occurrence: None)
  Receive Date: 20120821
  Receipt Date: 20120731
  Transmission Date: 20120928
  Serious: No
  Sender: FDA-Public Use
  Company Number: US-ROXANE LABORATORIES, INC.-2012-RO-01644RO

PATIENT
  Sex: Female

DRUGS (1)
  1. AZATHIOPRINE [Suspect]
     Indication: CROHN'S DISEASE
     Dosage: 200 MG
     Route: 048

REACTIONS (4)
  - VOMITING [None]
  - NAUSEA [None]
  - DIARRHOEA [None]
  - ABDOMINAL PAIN [None]
